FAERS Safety Report 20462399 (Version 6)
Quarter: 2022Q2

REPORT INFORMATION
  Report Type: Report from Study
  Country: DE (occurrence: DE)
  Receive Date: 20220211
  Receipt Date: 20220623
  Transmission Date: 20220721
  Serious: Yes (Life-Threatening, Other)
  Sender: FDA-Public Use
  Company Number: DE-BRISTOL-MYERS SQUIBB COMPANY-BMS-2022-019960

PATIENT
  Age: 65 Year
  Sex: Male
  Weight: 86 kg

DRUGS (10)
  1. DOCETAXEL [Suspect]
     Active Substance: DOCETAXEL
     Indication: Prostate cancer
     Dosage: RECENT DOSE: 19-JAN-2022
     Route: 065
     Dates: start: 20211208
  2. PREDNISOLONE [Concomitant]
     Active Substance: PREDNISOLONE
     Indication: Prostate cancer
     Dosage: RECENT DOSE:15-FEB-2022.
     Route: 065
     Dates: start: 20211208
  3. LOPERAMIDE [Concomitant]
     Active Substance: LOPERAMIDE
     Indication: Prophylaxis
     Dosage: 8 MILLIGRAM
     Route: 048
     Dates: start: 20211215
  4. POLYETHYLENE GLYCOLS [Concomitant]
     Active Substance: POLYETHYLENE GLYCOLS
     Indication: Prophylaxis
     Dosage: 1 DOSAGE FORM: 2 UNITS NOS
     Route: 048
     Dates: start: 20211215
  5. GRANULOCYTE COLONY-STIMULATING FACTOR NOS [Concomitant]
     Active Substance: GRANULOCYTE COLONY-STIMULATING FACTOR NOS
     Indication: Prophylaxis
     Dosage: 1 DOSAGE FORM: 263 UNITS NOS
     Route: 058
     Dates: start: 20220122, end: 20220125
  6. MCP [Concomitant]
     Active Substance: METOCLOPRAMIDE HYDROCHLORIDE
     Indication: Prophylaxis
     Dosage: 10 MILLIGRAM
     Route: 048
     Dates: start: 20211215
  7. ZOFRAN [Concomitant]
     Active Substance: ONDANSETRON HYDROCHLORIDE
     Indication: Prophylaxis
     Dosage: 16 MILLIGRAM
     Route: 048
     Dates: start: 20211215
  8. DUOFILM [SALICYLIC ACID] [Concomitant]
     Indication: Product used for unknown indication
     Dosage: 1 DOSAGE FORM: 2 UNITS NOS
     Route: 061
     Dates: start: 2021
  9. DERMATOP [Concomitant]
     Active Substance: PREDNICARBATE
     Indication: Product used for unknown indication
     Dosage: 1 DOSAGE FORM: 2 UNITS NOS
     Route: 061
     Dates: start: 20220105, end: 20220209
  10. RAMIPRIL [Concomitant]
     Active Substance: RAMIPRIL
     Indication: Product used for unknown indication
     Route: 048
     Dates: start: 20210301

REACTIONS (1)
  - Pulmonary embolism [Recovered/Resolved]

NARRATIVE: CASE EVENT DATE: 20220208
